FAERS Safety Report 14260677 (Version 1)
Quarter: 2017Q4

REPORT INFORMATION
  Report Type: Spontaneous
  Country: GB (occurrence: GB)
  Receive Date: 20171207
  Receipt Date: 20171207
  Transmission Date: 20180321
  Serious: Yes (Disabling)
  Sender: FDA-Public Use
  Company Number: GB-PFIZER INC-2017521870

PATIENT
  Age: 37 Year
  Sex: Male
  Weight: 74 kg

DRUGS (2)
  1. MIGRAMAX [Suspect]
     Active Substance: ASPIRIN DL-LYSINE\METOCLOPRAMIDE
     Indication: MIGRAINE
     Dosage: ONE SACHET TAKEN, A SECOND SACHET TAKEN AFTER 2 HOURS, A THIRD SACHET TAKEN AFTER A FURTHER 2 HOURS
     Route: 048
     Dates: start: 20171114, end: 20171115
  2. IBUPROFEN. [Suspect]
     Active Substance: IBUPROFEN
     Indication: MIGRAINE
     Dosage: 400 MG, SINGLE
     Route: 048
     Dates: start: 20171114, end: 20171114

REACTIONS (4)
  - Condition aggravated [Unknown]
  - Hemiparesis [Unknown]
  - Haemorrhage intracranial [Not Recovered/Not Resolved]
  - Headache [Unknown]

NARRATIVE: CASE EVENT DATE: 20171115
